FAERS Safety Report 24932644 (Version 1)
Quarter: 2025Q1

REPORT INFORMATION
  Report Type: Spontaneous
  Country: US (occurrence: US)
  Receive Date: 20250205
  Receipt Date: 20250205
  Transmission Date: 20250409
  Serious: Yes (Other)
  Sender: MERCK
  Company Number: US-009507513-2502USA001609

PATIENT
  Age: 67 Year
  Sex: Male

DRUGS (3)
  1. TEMODAR [Suspect]
     Active Substance: TEMOZOLOMIDE
     Indication: Glioblastoma
     Route: 048
  2. TEMODAR [Suspect]
     Active Substance: TEMOZOLOMIDE
     Route: 048
  3. TOVORAFENIB [Suspect]
     Active Substance: TOVORAFENIB
     Indication: Glioblastoma

REACTIONS (3)
  - Tumour pseudoprogression [Unknown]
  - Therapy non-responder [Unknown]
  - Product use issue [Unknown]
